FAERS Safety Report 10469151 (Version 1)
Quarter: 2014Q3

REPORT INFORMATION
  Report Type: Report from Study
  Country: US (occurrence: US)
  Receive Date: 20140923
  Receipt Date: 20140923
  Transmission Date: 20150326
  Serious: Yes (Hospitalization)
  Sender: FDA-Public Use
  Company Number: US-ROCHE-1464453

PATIENT
  Age: 51 Year
  Sex: Female
  Weight: 66.82 kg

DRUGS (5)
  1. BEVACIZUMAB [Suspect]
     Active Substance: BEVACIZUMAB
     Indication: OVARIAN EPITHELIAL CANCER
     Dosage: CYCLE 10 ON 24/APR/2014 WITH MAINTENANCE PHASE.?948 MG OVER 30-90 MINS ON DAY 1
     Route: 042
     Dates: start: 20130906
  2. PACLITAXEL. [Suspect]
     Active Substance: PACLITAXEL
     Indication: OVARIAN EPITHELIAL CANCER
     Dosage: 303 MG OVER 3 HRS ON DAY 1 WITH MAINTENANCE PHASE.?LAST ADMINISTERED DOSE ON 16/JAN/2014
     Route: 042
  3. ABT-888 [Suspect]
     Active Substance: VELIPARIB
     Indication: OVARIAN EPITHELIAL CANCER
     Dosage: CYCLE ON DAYS 1-21?LAST DOSE ON 29/JAN/2014
     Route: 048
  4. AMLODIPINE [Concomitant]
     Active Substance: AMLODIPINE BESYLATE
     Indication: BLOOD PRESSURE
  5. CARBOPLATIN. [Suspect]
     Active Substance: CARBOPLATIN
     Indication: OVARIAN EPITHELIAL CANCER
     Dosage: CYCLE 1?AREA UNDER CURVE = 6 OVER 30 MINUTES ON DAY 1?LAST DOSE ON 16/JAN/2014
     Route: 042

REACTIONS (5)
  - Vomiting [Recovered/Resolved with Sequelae]
  - Abdominal pain [Recovered/Resolved with Sequelae]
  - Nausea [Recovered/Resolved with Sequelae]
  - Hypokalaemia [Recovered/Resolved with Sequelae]
  - Hypertension [Recovered/Resolved with Sequelae]

NARRATIVE: CASE EVENT DATE: 20140425
